FAERS Safety Report 6554781-1 (Version None)
Quarter: 2010Q1

REPORT INFORMATION
  Report Type: 
  Country: None (occurrence: None)
  Receive Date: 20100127
  Receipt Date: 20100119
  Transmission Date: 20100710
  Serious: Yes (Death, Hospitalization)
  Sender: FDA-Public Use
  Company Number: US-GILEAD-2009-0022761

PATIENT
  Sex: Male
  Weight: 70.824 kg

DRUGS (5)
  1. LETAIRIS [Suspect]
     Indication: PULMONARY ARTERIAL HYPERTENSION
     Route: 048
     Dates: start: 20070815, end: 20090101
  2. AMIODARONE [Suspect]
  3. WARFARIN SODIUM [Concomitant]
  4. REMODULIN [Concomitant]
  5. LASIX [Concomitant]

REACTIONS (1)
  - HEPATIC FAILURE [None]
